FAERS Safety Report 7240719-0 (Version None)
Quarter: 2011Q1

REPORT INFORMATION
  Report Type: 
  Country: None (occurrence: None)
  Receive Date: 20110124
  Receipt Date: 20110112
  Transmission Date: 20110831
  Serious: Yes (Hospitalization)
  Sender: FDA-Public Use
  Company Number: BR-US-EMD SERONO, INC.-7029767

PATIENT
  Sex: Female

DRUGS (4)
  1. REBIF [Suspect]
     Indication: RELAPSING-REMITTING MULTIPLE SCLEROSIS
     Dates: start: 20080618
  2. OMEPRAZOLE [Concomitant]
  3. ASA [Concomitant]
  4. CAPTOPRIL [Concomitant]

REACTIONS (1)
  - ANGIOPATHY [None]
